FAERS Safety Report 10262491 (Version 3)
Quarter: 2015Q1

REPORT INFORMATION
  Report Type: Spontaneous
  Country: US (occurrence: US)
  Receive Date: 20140626
  Receipt Date: 20150303
  Transmission Date: 20150720
  Serious: Yes (Other)
  Sender: FDA-Public Use
  Company Number: US-PFIZER INC-2014171900

PATIENT
  Age: 53 Year
  Sex: Female

DRUGS (3)
  1. CELEBREX [Suspect]
     Active Substance: CELECOXIB
     Indication: OSTEOARTHRITIS
     Dosage: 200 MG, 2X/DAY
     Route: 048
  2. CELEBREX [Suspect]
     Active Substance: CELECOXIB
     Indication: INTERVERTEBRAL DISC DEGENERATION
  3. GABAPENTIN. [Suspect]
     Active Substance: GABAPENTIN
     Dosage: UNK
     Dates: start: 2000

REACTIONS (12)
  - Malaise [Unknown]
  - Bone disorder [Unknown]
  - Injury [Unknown]
  - Joint range of motion decreased [Unknown]
  - Hypoaesthesia [Unknown]
  - Pain [Unknown]
  - Limb injury [Unknown]
  - Spinal cord injury [Unknown]
  - Pruritus [Unknown]
  - Drug hypersensitivity [Unknown]
  - Dyskinesia [Unknown]
  - Neoplasm [Unknown]
